FAERS Safety Report 18107363 (Version 4)
Quarter: 2023Q4

REPORT INFORMATION
  Report Type: Spontaneous
  Country: US (occurrence: US)
  Receive Date: 20200804
  Receipt Date: 20231003
  Transmission Date: 20240110
  Serious: Yes (Hospitalization, Other)
  Sender: FDA-Public Use
  Company Number: US-GILEAD-2020-0486772

PATIENT
  Age: 56 Year
  Sex: Male
  Weight: 97.506 kg

DRUGS (90)
  1. TRUVADA [Suspect]
     Active Substance: EMTRICITABINE\TENOFOVIR DISOPROXIL FUMARATE
     Indication: HIV infection
     Dosage: UNK
     Route: 048
     Dates: start: 2004
  2. TRUVADA [Suspect]
     Active Substance: EMTRICITABINE\TENOFOVIR DISOPROXIL FUMARATE
     Dosage: UNK
     Route: 048
     Dates: start: 20070830, end: 20150526
  3. TRUVADA [Suspect]
     Active Substance: EMTRICITABINE\TENOFOVIR DISOPROXIL FUMARATE
     Dosage: UNK
     Route: 048
     Dates: start: 200708, end: 201605
  4. VIREAD [Suspect]
     Active Substance: TENOFOVIR DISOPROXIL FUMARATE
     Indication: HIV infection
     Dosage: UNK
     Route: 048
     Dates: start: 20040219, end: 200708
  5. BIKTARVY [Concomitant]
     Active Substance: BICTEGRAVIR SODIUM\EMTRICITABINE\TENOFOVIR ALAFENAMIDE FUMARATE
  6. DESCOVY [Concomitant]
     Active Substance: EMTRICITABINE\TENOFOVIR ALAFENAMIDE FUMARATE
  7. EPIVIR [Concomitant]
     Active Substance: LAMIVUDINE
  8. ISENTRESS [Concomitant]
     Active Substance: RALTEGRAVIR POTASSIUM
  9. KALETRA [Concomitant]
     Active Substance: LOPINAVIR\RITONAVIR
  10. PREZISTA [Concomitant]
     Active Substance: DARUNAVIR ETHANOLATE
  11. SYMTUZA [Concomitant]
     Active Substance: COBICISTAT\DARUNAVIR\EMTRICITABINE\TENOFOVIR ALAFENAMIDE
  12. TIVICAY [Concomitant]
     Active Substance: DOLUTEGRAVIR SODIUM
  13. TRIUMEQ [Concomitant]
     Active Substance: ABACAVIR SULFATE\DOLUTEGRAVIR SODIUM\LAMIVUDINE
  14. ABACAVIR [Concomitant]
     Active Substance: ABACAVIR
  15. DOLUTEGRAVIR [Concomitant]
     Active Substance: DOLUTEGRAVIR
  16. LAMIVUDINE [Concomitant]
     Active Substance: LAMIVUDINE
  17. ACETAMINOPHEN [Concomitant]
     Active Substance: ACETAMINOPHEN
  18. ACETAMINOPHEN\HYDROCODONE [Concomitant]
     Active Substance: ACETAMINOPHEN\HYDROCODONE
  19. ACETAMINOPHEN\OXYCODONE HYDROCHLORIDE [Concomitant]
     Active Substance: ACETAMINOPHEN\OXYCODONE HYDROCHLORIDE
  20. ALFUZOSIN [Concomitant]
     Active Substance: ALFUZOSIN
  21. AMINOCAPROIC ACID [Concomitant]
     Active Substance: AMINOCAPROIC ACID
  22. AMLODIPINE [Concomitant]
     Active Substance: AMLODIPINE BESYLATE
  23. ASPIRIN [Concomitant]
     Active Substance: ASPIRIN
  24. AUGMENTIN [Concomitant]
     Active Substance: AMOXICILLIN\CLAVULANATE POTASSIUM
  25. BACTRIM [Concomitant]
     Active Substance: SULFAMETHOXAZOLE\TRIMETHOPRIM
  26. BENADRYL [Concomitant]
     Active Substance: DIPHENHYDRAMINE HYDROCHLORIDE
  27. CEFAZOLIN [Concomitant]
     Active Substance: CEFAZOLIN
  28. CELECOXIB [Concomitant]
     Active Substance: CELECOXIB
  29. CEPHALEXIN [Concomitant]
     Active Substance: CEPHALEXIN
  30. CLINDAMYCIN [Concomitant]
     Active Substance: CLINDAMYCIN
  31. COLACE [Concomitant]
     Active Substance: DOCUSATE SODIUM
  32. DEXTROMETHORPHAN [Concomitant]
     Active Substance: DEXTROMETHORPHAN
  33. DOCUSATE [Concomitant]
     Active Substance: DOCUSATE
  34. EPHEDRINE [Concomitant]
     Active Substance: EPHEDRINE
  35. ESOMEPRAZOLE [Concomitant]
     Active Substance: ESOMEPRAZOLE
  36. FERROUS SULFATE [Concomitant]
     Active Substance: FERROUS SULFATE
  37. FENTANYL [Concomitant]
     Active Substance: FENTANYL
  38. FINASTERIDE [Concomitant]
     Active Substance: FINASTERIDE
  39. FLOMAX [Concomitant]
     Active Substance: TAMSULOSIN HYDROCHLORIDE
  40. GABAPENTIN [Concomitant]
     Active Substance: GABAPENTIN
  41. CHONDROITIN SULFATE (BOVINE)\GLUCOSAMINE HYDROCHLORIDE [Concomitant]
     Active Substance: CHONDROITIN SULFATE (BOVINE)\GLUCOSAMINE HYDROCHLORIDE
  42. HYDRALAZINE [Concomitant]
     Active Substance: HYDRALAZINE HYDROCHLORIDE
  43. HYDROCHLOROTHIAZIDE [Concomitant]
     Active Substance: HYDROCHLOROTHIAZIDE
  44. JULUCA [Concomitant]
     Active Substance: DOLUTEGRAVIR SODIUM\RILPIVIRINE HYDROCHLORIDE
  45. KETAMINE [Concomitant]
     Active Substance: KETAMINE
  46. KOGENATE [Concomitant]
     Active Substance: ANTIHEMOPHILIC FACTOR, HUMAN RECOMBINANT
  47. LINEZOLID [Concomitant]
     Active Substance: LINEZOLID
  48. LISINOPRIL [Concomitant]
     Active Substance: LISINOPRIL
  49. LOPINAVIR [Concomitant]
     Active Substance: LOPINAVIR
  50. CALCIUM CARBONATE [Concomitant]
     Active Substance: CALCIUM CARBONATE
  51. MECLOFENAMATE SODIUM [Concomitant]
     Active Substance: MECLOFENAMATE SODIUM
  52. MODAFINIL [Concomitant]
     Active Substance: MODAFINIL
  53. MECLOMEN [Concomitant]
     Active Substance: MECLOFENAMATE SODIUM
  54. METHOCARBAMOL [Concomitant]
     Active Substance: METHOCARBAMOL
  55. MORPHINE [Concomitant]
     Active Substance: MORPHINE
  56. VITAMINS NOS [Concomitant]
     Active Substance: VITAMINS
  57. MYCOPHENOLIC ACID [Concomitant]
     Active Substance: MYCOPHENOLIC ACID
  58. NEUPOGEN [Concomitant]
     Active Substance: FILGRASTIM
  59. NEXIUM [Concomitant]
     Active Substance: ESOMEPRAZOLE MAGNESIUM
  60. NUVIGIL [Concomitant]
     Active Substance: ARMODAFINIL
  61. OXYCODONE [Concomitant]
     Active Substance: OXYCODONE
  62. INTERFERON ALFA-2B [Concomitant]
     Active Substance: INTERFERON ALFA-2B
  63. PEPCID AC [Concomitant]
     Active Substance: FAMOTIDINE
  64. PHENYLEPHRINE [Concomitant]
     Active Substance: PHENYLEPHRINE HYDROCHLORIDE
  65. POLYETHYLENE GLYCOLS [Concomitant]
     Active Substance: POLYETHYLENE GLYCOLS
  66. PROPOFOL [Concomitant]
     Active Substance: PROPOFOL
  67. RIFAMPIN [Concomitant]
     Active Substance: RIFAMPIN
  68. RITONAVIR [Concomitant]
     Active Substance: RITONAVIR
  69. SCOPOLAMINE [Concomitant]
     Active Substance: SCOPOLAMINE
  70. SENNA [Concomitant]
     Active Substance: SENNA LEAF\SENNOSIDES\SENNOSIDES A AND B
  71. SUXAMETHONIUM BROMIDE [Concomitant]
     Active Substance: SUXAMETHONIUM BROMIDE
  72. SUGAMMADEX [Concomitant]
     Active Substance: SUGAMMADEX
  73. SULFAMETHOXAZOLE AND TRIMETHOPRIM [Concomitant]
     Active Substance: SULFAMETHOXAZOLE\TRIMETHOPRIM
  74. TAMSULOSIN [Concomitant]
     Active Substance: TAMSULOSIN
  75. TERAZOSIN [Concomitant]
     Active Substance: TERAZOSIN HYDROCHLORIDE
  76. TRAMADOL [Concomitant]
     Active Substance: TRAMADOL\TRAMADOL HYDROCHLORIDE
  77. TYLENOL [Concomitant]
     Active Substance: ACETAMINOPHEN
  78. TYLENOL WITH CODEINE [Concomitant]
     Active Substance: ACETAMINOPHEN\CODEINE PHOSPHATE
  79. VANCOMYCIN [Concomitant]
     Active Substance: VANCOMYCIN
  80. VIAGRA [Concomitant]
     Active Substance: SILDENAFIL CITRATE
  81. VITAMIN D NOS [Concomitant]
     Active Substance: VITAMIN D NOS
  82. CALCIUM\ERGOCALCIFEROL [Concomitant]
     Active Substance: CALCIUM\ERGOCALCIFEROL
  83. VITAMIN D3 [Concomitant]
     Active Substance: CHOLECALCIFEROL
  84. UROXATRAL [Concomitant]
     Active Substance: ALFUZOSIN HYDROCHLORIDE
  85. ZANTAC [Concomitant]
     Active Substance: RANITIDINE HYDROCHLORIDE
  86. ZOFRAN [Concomitant]
     Active Substance: ONDANSETRON HYDROCHLORIDE
  87. ZYRTEC [Concomitant]
     Active Substance: CETIRIZINE HYDROCHLORIDE
  88. PROVIGIL [Concomitant]
     Active Substance: MODAFINIL
  89. PROCHLORPERAZINE [Concomitant]
     Active Substance: PROCHLORPERAZINE
  90. ANTIHEMOPHILIC FACTOR, HUMAN RECOMBINANT [Concomitant]
     Active Substance: ANTIHEMOPHILIC FACTOR, HUMAN RECOMBINANT

REACTIONS (14)
  - Shoulder fracture [Not Recovered/Not Resolved]
  - Foot fracture [Not Recovered/Not Resolved]
  - Chronic kidney disease [Not Recovered/Not Resolved]
  - Renal impairment [Not Recovered/Not Resolved]
  - Osteoporosis [Not Recovered/Not Resolved]
  - Multiple fractures [Unknown]
  - Tibia fracture [Not Recovered/Not Resolved]
  - Bone demineralisation [Unknown]
  - Hypertension [Not Recovered/Not Resolved]
  - Pain [Not Recovered/Not Resolved]
  - Emotional distress [Not Recovered/Not Resolved]
  - Anxiety [Not Recovered/Not Resolved]
  - Anhedonia [Not Recovered/Not Resolved]
  - Osteopenia [Not Recovered/Not Resolved]

NARRATIVE: CASE EVENT DATE: 20040727
